FAERS Safety Report 4735096-0 (Version None)
Quarter: 2005Q3

REPORT INFORMATION
  Report Type: 
  Country: None (occurrence: None)
  Receive Date: 20050804
  Receipt Date: 20050518
  Transmission Date: 20060218
  Serious: Yes (Hospitalization, Disabling)
  Sender: FDA-Public Use
  Company Number: US-MERCK-0505USA02264

PATIENT
  Age: 71 Year
  Sex: Male
  Weight: 84 kg

DRUGS (9)
  1. VIOXX [Suspect]
     Indication: ARTHRITIS
     Route: 048
     Dates: start: 19991230, end: 20040930
  2. ASPIRIN [Concomitant]
     Route: 048
     Dates: start: 19850101
  3. PRINIVIL [Concomitant]
     Route: 065
  4. ACCUPRIL [Concomitant]
     Indication: HYPERTENSION
     Route: 065
  5. TOPROL-XL [Concomitant]
     Indication: HYPERTENSION
     Route: 065
  6. TIAZAC [Concomitant]
     Indication: HYPERTENSION
     Route: 065
  7. NEXIUM [Concomitant]
     Indication: GASTROOESOPHAGEAL REFLUX DISEASE
     Route: 065
  8. HYDRODIURIL [Concomitant]
     Indication: HYPERTENSION
     Route: 065
  9. ALLOPURINOL [Concomitant]
     Indication: GOUT
     Route: 065

REACTIONS (4)
  - BLOOD CHOLESTEROL INCREASED [None]
  - CEREBROVASCULAR ACCIDENT [None]
  - EPISTAXIS [None]
  - TRANSIENT ISCHAEMIC ATTACK [None]
